FAERS Safety Report 8305733-2 (Version None)
Quarter: 2012Q2

REPORT INFORMATION
  Report Type: 
  Country: None (occurrence: None)
  Receive Date: 20120423
  Receipt Date: 20120412
  Transmission Date: 20120825
  Serious: Yes (Death, Hospitalization)
  Sender: FDA-Public Use
  Company Number: CA-JNJFOC-20120405779

PATIENT
  Sex: Female
  Weight: 45 kg

DRUGS (5)
  1. DICLOFENAC [Concomitant]
     Indication: ANKYLOSING SPONDYLITIS
     Route: 048
  2. PLAQUENIL [Concomitant]
     Indication: ANKYLOSING SPONDYLITIS
     Route: 048
  3. REMICADE [Suspect]
     Indication: ANKYLOSING SPONDYLITIS
     Dosage: WEEK 0
     Route: 042
     Dates: start: 20111111
  4. REMICADE [Suspect]
     Dosage: WEEK 2
     Route: 042
     Dates: start: 20111123
  5. REMICADE [Suspect]
     Dosage: WEEK 6
     Route: 042
     Dates: start: 20111219

REACTIONS (1)
  - INTESTINAL OBSTRUCTION [None]
